FAERS Safety Report 9275102 (Version 1)
Quarter: 2012Q4

REPORT INFORMATION
  Report Type: Spontaneous
  Country: US (occurrence: None)
  Receive Date: 20121026
  Receipt Date: 20121026
  Transmission Date: 20130627
  Serious: Yes (Hospitalization, Other)
  Sender: FDA-Public Use
  Company Number: 2012US0337

PATIENT
  Age: 10 Year
  Sex: Female
  Weight: 28.3 kg

DRUGS (1)
  1. ANAKINRA [Suspect]
     Indication: AUTOINFLAMMATORY DISEASE
     Route: 058
     Dates: start: 20120801

REACTIONS (3)
  - Arthralgia [None]
  - Drug ineffective [None]
  - Joint warmth [None]
